FAERS Safety Report 24671978 (Version 1)
Quarter: 2024Q4

REPORT INFORMATION
  Report Type: Spontaneous
  Country: JP (occurrence: JP)
  Receive Date: 20241127
  Receipt Date: 20241127
  Transmission Date: 20250115
  Serious: Yes (Other)
  Sender: JOHNSON AND JOHNSON
  Company Number: JP-BAYER-2024A163818

PATIENT
  Age: 73 Year
  Sex: Male

DRUGS (1)
  1. XARELTO [Suspect]
     Active Substance: RIVAROXABAN
     Indication: Atrial fibrillation
     Dosage: DAILY DOSE 15 MG
     Route: 048

REACTIONS (10)
  - Blood pressure increased [Unknown]
  - Somnolence [Unknown]
  - Aphasia [Unknown]
  - Eye movement disorder [Unknown]
  - Hemiplegia [Unknown]
  - Basal ganglia haematoma [Unknown]
  - Cerebral ventricular rupture [Unknown]
  - Depressed level of consciousness [Unknown]
  - Vomiting [Unknown]
  - Fall [Unknown]
